FAERS Safety Report 14407902 (Version 1)
Quarter: 2018Q1

REPORT INFORMATION
  Report Type: Spontaneous
  Country: NL (occurrence: NL)
  Receive Date: 20180118
  Receipt Date: 20180118
  Transmission Date: 20180509
  Serious: Yes (Hospitalization)
  Sender: FDA-Public Use
  Company Number: NL-PFIZER INC-2018021531

PATIENT

DRUGS (4)
  1. AVASTIN [Suspect]
     Active Substance: BEVACIZUMAB
     Indication: COLORECTAL CANCER
     Dosage: UNK, MOST RECENT DOSE PRIOR TO SAE : 06JUL2017.
     Route: 065
     Dates: start: 20170524
  2. OXALIPLATIN. [Suspect]
     Active Substance: OXALIPLATIN
     Indication: COLORECTAL CANCER
     Dosage: UNK. MOST RECENT DOSE PRIOR TO SAE : 06JUL2017.
     Route: 065
  3. 5-FU /00098801/ [Suspect]
     Active Substance: FLUOROURACIL
     Indication: COLORECTAL CANCER
     Dosage: UNK, MOST RECENT DOSE PRIOR TO SAE : 06JUL2017.
     Route: 065
     Dates: start: 20170524
  4. LEUCOVORIN /00566701/ [Suspect]
     Active Substance: LEUCOVORIN
     Indication: COLORECTAL CANCER
     Dosage: UNK, MOST RECENT DOSE PRIOR TO SAE : 06JUL2017.
     Route: 065
     Dates: start: 20170524

REACTIONS (2)
  - Confusional state [Recovered/Resolved]
  - Hypercalcaemia [Recovered/Resolved]

NARRATIVE: CASE EVENT DATE: 20170801
